FAERS Safety Report 21682748 (Version 1)
Quarter: 2022Q4

REPORT INFORMATION
  Report Type: Spontaneous
  Country: US (occurrence: None)
  Receive Date: 20221202
  Receipt Date: 20221202
  Transmission Date: 20230112
  Serious: No
  Sender: FDA-Public Use
  Company Number: None

PATIENT
  Age: 15 Year
  Sex: Female

DRUGS (2)
  1. STELARA [Suspect]
     Active Substance: USTEKINUMAB
     Indication: Crohn^s disease
  2. STELARA [Concomitant]
     Active Substance: USTEKINUMAB
     Dates: start: 20220802

REACTIONS (1)
  - Amnesia [None]

NARRATIVE: CASE EVENT DATE: 20221017
